FAERS Safety Report 5249123-8 (Version None)
Quarter: 2007Q1

REPORT INFORMATION
  Report Type: 
  Country: None (occurrence: None)
  Receive Date: 20070222
  Receipt Date: 20070209
  Transmission Date: 20070707
  Serious: Yes (Hospitalization)
  Sender: FDA-Public Use
  Company Number: SU-2006-005726

PATIENT
  Age: 52 Year
  Sex: Male

DRUGS (2)
  1. BENICAR HCT [Suspect]
     Indication: BLOOD PRESSURE
     Dosage: 40.25 MG QD PO
     Route: 048
     Dates: start: 20060101, end: 20060101
  2. LYRICA [Concomitant]

REACTIONS (5)
  - ALCOHOLISM [None]
  - BLOOD PRESSURE DECREASED [None]
  - CORONARY ARTERY OCCLUSION [None]
  - SILENT MYOCARDIAL INFARCTION [None]
  - WEIGHT INCREASED [None]
